FAERS Safety Report 15364682 (Version 1)
Quarter: 2018Q3

REPORT INFORMATION
  Report Type: Spontaneous
  Country: US (occurrence: US)
  Receive Date: 20180910
  Receipt Date: 20180910
  Transmission Date: 20181010
  Serious: No
  Sender: FDA-Public Use
  Company Number: US-ALEMBIC PHARMACUETICALS LIMITED-2018SCAL000076

PATIENT

DRUGS (1)
  1. MODAFINIL. [Suspect]
     Active Substance: MODAFINIL
     Indication: SOMNOLENCE
     Dosage: UNK
     Dates: start: 201711

REACTIONS (3)
  - Drug ineffective [Unknown]
  - Migraine [Unknown]
  - Product substitution issue [Unknown]

NARRATIVE: CASE EVENT DATE: 201711
